FAERS Safety Report 5522518-0 (Version None)
Quarter: 2007Q4

REPORT INFORMATION
  Report Type: 
  Country: None (occurrence: None)
  Receive Date: 20071120
  Receipt Date: 20071109
  Transmission Date: 20080405
  Serious: Yes (Hospitalization, Other)
  Sender: FDA-Public Use
  Company Number: DE-PFIZER INC-2007080644

PATIENT
  Sex: Male

DRUGS (1)
  1. VIAGRA [Suspect]
     Route: 048

REACTIONS (3)
  - ABDOMINAL PAIN LOWER [None]
  - INCORRECT ROUTE OF DRUG ADMINISTRATION [None]
  - INGUINAL HERNIA [None]
